FAERS Safety Report 4594266-5 (Version None)
Quarter: 2005Q1

REPORT INFORMATION
  Report Type: 
  Country: None (occurrence: None)
  Receive Date: 20050223
  Receipt Date: 20050215
  Transmission Date: 20050727
  Serious: Yes (Other)
  Sender: FDA-Public Use
  Company Number: 2004089745

PATIENT
  Age: 57 Year
  Sex: Female
  Weight: 58.0604 kg

DRUGS (12)
  1. LINEZOLID TABLET (LINEZOLID) [Suspect]
     Indication: OSTEOMYELITIS
     Dosage: 800 MG (400 MG, BID INTERVAL: EVERY DAY), ORAL
     Route: 048
     Dates: start: 20040928, end: 20041025
  2. TETRACYCLINE [Suspect]
     Indication: OSTEOMYELITIS
     Dosage: ORAL
     Route: 048
     Dates: start: 20040928, end: 20041025
  3. NYSTATIN [Suspect]
     Indication: CANDIDIASIS
     Dosage: INTERVAL: EVERY DAY, ORAL
     Route: 048
     Dates: start: 20041018
  4. FUROSEMIDE [Concomitant]
  5. CALCITONIN, SALMON (CALCITONIN, SALMON) [Concomitant]
  6. BACLOFEN [Concomitant]
  7. PAROXETINE HCL [Concomitant]
  8. POTASSIUM ACETATE [Concomitant]
  9. METHADONE HCL [Concomitant]
  10. PROCHLORPERAZINE EDISYLATE [Concomitant]
  11. CLINDAMYCIN HYDROCHLORIDE [Concomitant]
  12. INTERFERON (INTERFERON) [Concomitant]

REACTIONS (10)
  - ALANINE AMINOTRANSFERASE INCREASED [None]
  - ALOPECIA [None]
  - ASPARTATE AMINOTRANSFERASE INCREASED [None]
  - ASTHENIA [None]
  - BLOOD ALKALINE PHOSPHATASE INCREASED [None]
  - BLOOD BILIRUBIN INCREASED [None]
  - GASTROINTESTINAL CANDIDIASIS [None]
  - LIVER TENDERNESS [None]
  - MALAISE [None]
  - ORAL CANDIDIASIS [None]
